FAERS Safety Report 25143517 (Version 11)
Quarter: 2025Q3

REPORT INFORMATION
  Report Type: Spontaneous
  Country: EU (occurrence: EU)
  Receive Date: 20250401
  Receipt Date: 20250925
  Transmission Date: 20251021
  Serious: Yes (Hospitalization, Other)
  Sender: CELLTRION
  Company Number: EU-SA-2024SA283154

PATIENT

DRUGS (10)
  1. TRASTUZUMAB [Suspect]
     Active Substance: TRASTUZUMAB
     Indication: Colon cancer
     Route: 042
     Dates: start: 20240726, end: 20240819
  2. OXALIPLATIN [Suspect]
     Active Substance: OXALIPLATIN
     Indication: Colon cancer
     Dosage: 150 MG, QOW (2 WEEKS)
     Route: 042
     Dates: start: 20240802, end: 20240819
  3. TUCATINIB [Suspect]
     Active Substance: TUCATINIB
     Indication: Colorectal cancer metastatic
     Route: 048
     Dates: start: 20240726, end: 20240819
  4. FLUOROURACIL [Suspect]
     Active Substance: FLUOROURACIL
     Indication: Colon cancer
     Dosage: 738 MG, QOW
     Route: 042
     Dates: start: 20240802, end: 20240819
  5. FLUOROURACIL [Suspect]
     Active Substance: FLUOROURACIL
     Dosage: 4200 MG, Q2WEEKS (4200 MG, 2384.84MG/M2; QOW)
     Route: 042
     Dates: start: 20240802, end: 20240819
  6. LEUCOVORIN CALCIUM [Suspect]
     Active Substance: LEUCOVORIN CALCIUM
     Indication: Colon cancer
     Dosage: 922 MG, QOW
     Route: 042
     Dates: start: 20240802, end: 20240819
  7. LOPERAMIDE HYDROCHLORIDE [Suspect]
     Active Substance: LOPERAMIDE HYDROCHLORIDE
     Indication: Colon cancer
     Route: 048
     Dates: start: 20240707, end: 20241014
  8. LOPERAMIDE HYDROCHLORIDE [Suspect]
     Active Substance: LOPERAMIDE HYDROCHLORIDE
     Indication: Diarrhoea
  9. LOSARTAN [Concomitant]
     Active Substance: LOSARTAN
     Indication: Hypertension
     Route: 048
     Dates: start: 20240817, end: 20240917
  10. METFORMIN [Concomitant]
     Active Substance: METFORMIN HYDROCHLORIDE
     Indication: Type 2 diabetes mellitus
     Route: 065
     Dates: start: 20240817, end: 20240917

REACTIONS (6)
  - Hypovolaemia [Recovered/Resolved]
  - Hyponatraemia [Recovered/Resolved]
  - Acute kidney injury [Recovered/Resolved]
  - Blood creatine increased [Recovered/Resolved]
  - Confusional state [Recovered/Resolved]
  - Intentional product use issue [Unknown]

NARRATIVE: CASE EVENT DATE: 20240916
